FAERS Safety Report 8919342 (Version 1)
Quarter: 2012Q4

REPORT INFORMATION
  Report Type: 
  Country: US (occurrence: US)
  Receive Date: 20121121
  Receipt Date: 20121121
  Transmission Date: 20130627
  Serious: No
  Sender: FDA-Public Use
  Company Number: US-GLAXOSMITHKLINE-A0993289A

PATIENT
  Age: 64 Year
  Sex: Male

DRUGS (5)
  1. ARZERRA [Suspect]
     Indication: CHRONIC LYMPHOCYTIC LEUKAEMIA
     Dosage: 300MG Every two weeks
     Route: 042
     Dates: start: 20120827
  2. BENADRYL [Concomitant]
  3. TYLENOL [Concomitant]
  4. HYDROCORTISONE [Concomitant]
  5. PEPCID [Concomitant]

REACTIONS (3)
  - Infusion related reaction [Unknown]
  - Rash [Unknown]
  - Chills [Unknown]
